FAERS Safety Report 4787332-2 (Version None)
Quarter: 2005Q4

REPORT INFORMATION
  Report Type: 
  Country: None (occurrence: None)
  Receive Date: 20051003
  Receipt Date: 20050921
  Transmission Date: 20060501
  Serious: Yes (Death)
  Sender: FDA-Public Use
  Company Number: HQWYE609923SEP05

PATIENT
  Age: 37 Year
  Sex: 0

DRUGS (3)
  1. INDERAL [Suspect]
     Dosage: ACUTE DOSAGE
  2. PROPOXYPHENE HCL AND ACETAMINOPHEN [Suspect]
  3. QUETIAPINE FUMARATE [Suspect]

REACTIONS (3)
  - COMPLETED SUICIDE [None]
  - INTENTIONAL DRUG MISUSE [None]
  - MULTIPLE DRUG OVERDOSE [None]
